FAERS Safety Report 15337014 (Version 9)
Quarter: 2020Q4

REPORT INFORMATION
  Report Type: Other
  Country: CA (occurrence: CA)
  Receive Date: 20180831
  Receipt Date: 20201211
  Transmission Date: 20210113
  Serious: Yes (Other)
  Sender: FDA-Public Use
  Company Number: CA-APOTEX-2018AP019548

PATIENT
  Age: 67 Year
  Sex: Female

DRUGS (26)
  1. GOLD [Suspect]
     Active Substance: GOLD
     Indication: PRODUCT USED FOR UNKNOWN INDICATION
     Dosage: UNK
     Route: 065
  2. METHOTREXATE. [Suspect]
     Active Substance: METHOTREXATE
     Indication: RHEUMATOID ARTHRITIS
     Dosage: 17.5 MILLIGRAM
     Route: 065
  3. MOBICOX [Suspect]
     Active Substance: MELOXICAM
     Indication: PRODUCT USED FOR UNKNOWN INDICATION
     Dosage: UNK
     Route: 065
  4. PANTOPRAZOLE MAGNESIUM [Concomitant]
     Active Substance: PANTOPRAZOLE MAGNESIUM
     Indication: PRODUCT USED FOR UNKNOWN INDICATION
     Dosage: UNK
     Route: 065
  5. DEPO-MEDROL [Concomitant]
     Active Substance: METHYLPREDNISOLONE ACETATE
     Indication: RHEUMATOID ARTHRITIS
     Dosage: 80 MG, QD
     Route: 014
  6. HUMIRA [Suspect]
     Active Substance: ADALIMUMAB
     Indication: RHEUMATOID ARTHRITIS
     Dosage: UNK
     Route: 058
  7. ORENCIA [Suspect]
     Active Substance: ABATACEPT
     Indication: RHEUMATOID ARTHRITIS
     Dosage: 750 MILLIGRAM
     Route: 042
  8. HYDROXYCHLOROQUINE SULFATE. [Concomitant]
     Active Substance: HYDROXYCHLOROQUINE SULFATE
     Indication: RHEUMATOID ARTHRITIS
     Dosage: UNK
     Route: 048
  9. RITUXIMAB. [Suspect]
     Active Substance: RITUXIMAB
     Indication: RHEUMATOID ARTHRITIS
     Route: 042
  10. PLAQUENIL                          /00072602/ [Concomitant]
     Active Substance: HYDROXYCHLOROQUINE DIPHOSPHATE
     Indication: PRODUCT USED FOR UNKNOWN INDICATION
     Dosage: UNK
     Route: 065
  11. PREDNISONE. [Concomitant]
     Active Substance: PREDNISONE
     Indication: PRODUCT USED FOR UNKNOWN INDICATION
     Dosage: UNK
     Route: 065
  12. DEPO-MEDROL [Concomitant]
     Active Substance: METHYLPREDNISOLONE ACETATE
     Dosage: 80 MILLIGRAM, QD
     Route: 050
  13. LEFLUNOMIDE. [Suspect]
     Active Substance: LEFLUNOMIDE
     Dosage: UNK, THERAPY DURATION: 59
     Route: 065
  14. HYDROXYCHLOROQUINE [Suspect]
     Active Substance: HYDROXYCHLOROQUINE
     Indication: PRODUCT USED FOR UNKNOWN INDICATION
     Dosage: 400 MILLIGRAM
     Route: 065
  15. MELOXICAM. [Suspect]
     Active Substance: MELOXICAM
     Indication: PRODUCT USED FOR UNKNOWN INDICATION
     Dosage: UNK
     Route: 065
  16. ACTEMRA [Suspect]
     Active Substance: TOCILIZUMAB
     Dosage: 190 MG, Q.WK.
     Route: 065
  17. DICLOFENAC [Concomitant]
     Active Substance: DICLOFENAC
     Indication: RHEUMATOID ARTHRITIS
     Dosage: UNK
     Route: 065
  18. METHOTREXATE. [Suspect]
     Active Substance: METHOTREXATE
     Dosage: 20 MILLIGRAM, Q.WK.
     Route: 065
  19. METHYLPREDNISOLONE ACETATE. [Concomitant]
     Active Substance: METHYLPREDNISOLONE ACETATE
     Indication: RHEUMATOID ARTHRITIS
     Dosage: 80 MG, QD
     Route: 050
  20. METHYLPREDNISOLONE ACETATE. [Concomitant]
     Active Substance: METHYLPREDNISOLONE ACETATE
     Dosage: 80 MG, UNK
     Route: 050
  21. HUMIRA [Concomitant]
     Active Substance: ADALIMUMAB
     Indication: RHEUMATOID ARTHRITIS
     Route: 058
  22. ARAVA [Suspect]
     Active Substance: LEFLUNOMIDE
     Indication: PRODUCT USED FOR UNKNOWN INDICATION
     Route: 065
  23. ENBREL [Suspect]
     Active Substance: ETANERCEPT
     Indication: RHEUMATOID ARTHRITIS
     Dosage: UNK
     Route: 065
  24. LEFLUNOMIDE. [Suspect]
     Active Substance: LEFLUNOMIDE
     Indication: RHEUMATOID ARTHRITIS
     Dosage: UNK
     Route: 065
  25. ACTEMRA [Suspect]
     Active Substance: TOCILIZUMAB
     Indication: RHEUMATOID ARTHRITIS
     Dosage: 160 MG, Q.WK.
     Route: 058
  26. XELJANZ [Concomitant]
     Active Substance: TOFACITINIB CITRATE
     Indication: RHEUMATOID ARTHRITIS
     Dosage: 5 MG, BID
     Route: 048

REACTIONS (44)
  - Synovitis [Recovered/Resolved]
  - Peripheral swelling [Recovered/Resolved]
  - Arthralgia [Recovered/Resolved]
  - Cataract [Recovered/Resolved]
  - Malaise [Recovered/Resolved]
  - Diarrhoea [Recovered/Resolved]
  - Therapeutic product effect decreased [Unknown]
  - Rash pruritic [Recovered/Resolved]
  - Tenosynovitis [Recovered/Resolved]
  - Allergy to chemicals [Unknown]
  - C-reactive protein increased [Unknown]
  - Rheumatoid nodule [Unknown]
  - Upper respiratory tract infection [Unknown]
  - Musculoskeletal stiffness [Recovered/Resolved]
  - Dry eye [Recovered/Resolved]
  - White blood cell count decreased [Unknown]
  - Feeling abnormal [Recovered/Resolved]
  - Contraindicated product administered [Not Recovered/Not Resolved]
  - Rash maculo-papular [Recovered/Resolved]
  - Mobility decreased [Recovered/Resolved]
  - Muscular weakness [Recovered/Resolved]
  - Viral upper respiratory tract infection [Recovered/Resolved]
  - Drug intolerance [Recovered/Resolved]
  - Rheumatoid lung [Recovered/Resolved]
  - Rheumatoid arthritis [Recovered/Resolved]
  - Myalgia [Recovered/Resolved]
  - Deformity [Unknown]
  - Fatigue [Recovered/Resolved]
  - Dizziness [Recovered/Resolved]
  - Bone density decreased [Recovered/Resolved]
  - Joint range of motion decreased [Recovered/Resolved]
  - Hand deformity [Recovered/Resolved]
  - Pain in extremity [Recovered/Resolved]
  - Crepitations [Unknown]
  - Liver disorder [Unknown]
  - Fibromyalgia [Recovered/Resolved]
  - Joint swelling [Recovered/Resolved]
  - Pulmonary toxicity [Recovered/Resolved]
  - Drug ineffective [Recovered/Resolved]
  - Synovial cyst [Recovered/Resolved]
  - Musculoskeletal pain [Recovered/Resolved]
  - Pain [Recovered/Resolved]
  - Off label use [Recovered/Resolved]
  - Treatment failure [Recovered/Resolved]
